FAERS Safety Report 9274431 (Version 1)
Quarter: 2013Q2

REPORT INFORMATION
  Report Type: Spontaneous
  Country: US (occurrence: US)
  Receive Date: 20130506
  Receipt Date: 20130506
  Transmission Date: 20140414
  Serious: No
  Sender: FDA-Public Use
  Company Number: US-009507513-1305USA001264

PATIENT
  Age: 64 Year
  Sex: Female

DRUGS (1)
  1. TIMOLOL MALEATE [Suspect]
     Indication: GLAUCOMA
     Dosage: 0.5% IN BOTH EYES TWICE DAILY
     Dates: start: 200304

REACTIONS (2)
  - Eye pruritus [Unknown]
  - Lacrimation increased [Unknown]
